FAERS Safety Report 7599632-1 (Version None)
Quarter: 2011Q2

REPORT INFORMATION
  Report Type: 
  Country: None (occurrence: None)
  Receive Date: 20110623
  Receipt Date: 20110615
  Transmission Date: 20111010
  Serious: Yes (Other)
  Sender: FDA-Public Use
  Company Number: 2011028658

PATIENT
  Age: 71 Year
  Sex: Female
  Weight: 72.1219 kg

DRUGS (19)
  1. PLAVIX [Concomitant]
  2. ACIDOPHILUS (LACTOBACILLUS ACIDUPHILUS) [Concomitant]
  3. HIZENTRA [Suspect]
     Indication: IMMUNODEFICIENCY COMMON VARIABLE
     Dosage: (10 G 1X/WEEK, 50 ML PER 4 SITES OVER 1 HOUR 14 MINUTES 20% CONCENTRATION SUBCUTANEOUS)
     Route: 058
     Dates: start: 20110223
  4. SINGULAIR [Concomitant]
  5. ZANTAC [Concomitant]
  6. METOPROLOL TARTRATE [Concomitant]
  7. LORTAB (LORTAB /01744401/) [Concomitant]
  8. HIZENTRA [Suspect]
     Indication: IMMUNODEFICIENCY COMMON VARIABLE
     Dosage: 10 G 1X/WEEK, 50 ML PER 4 SITES OVER 1 HOUR 14 MINUTES 20% CONCENTRATION SUBCUTANEOUS
     Route: 058
     Dates: start: 20110223
  9. IPRATROPIUM BROMIDE [Concomitant]
  10. ALLEGRA [Concomitant]
  11. LISINOPRIL [Concomitant]
  12. PULMICORT [Concomitant]
  13. SIMVASTATIN [Concomitant]
  14. PROTONIX [Concomitant]
  15. CLONAZEPAM [Concomitant]
  16. TICLID [Concomitant]
  17. ALBUTEROL [Concomitant]
  18. OMEPRAZOLE [Concomitant]
  19. ASPIRIN [Concomitant]

REACTIONS (1)
  - RESPIRATORY TRACT INFECTION [None]
